FAERS Safety Report 4343845-9 (Version None)
Quarter: 2004Q2

REPORT INFORMATION
  Report Type: 
  Country: None (occurrence: None)
  Receive Date: 20040419
  Receipt Date: 20040405
  Transmission Date: 20050107
  Serious: Yes (Hospitalization)
  Sender: FDA-Public Use
  Company Number: DE-JNJFOC-20040300097

PATIENT
  Age: 53 Year
  Sex: Male

DRUGS (25)
  1. INFLIXIMAB, RECOMBINANT-BLINDED (INFLIXIMAB, RECOMBINANT) LYOPHILIZED [Suspect]
     Indication: ANKYLOSING SPONDYLITIS
     Dosage: INTRAVENOUS
     Route: 042
     Dates: start: 20030217
  2. INFLIXIMAB, RECOMBINANT-BLINDED (INFLIXIMAB, RECOMBINANT) LYOPHILIZED [Suspect]
     Indication: ANKYLOSING SPONDYLITIS
     Dosage: INTRAVENOUS
     Route: 042
     Dates: start: 20030307
  3. INFLIXIMAB, RECOMBINANT-BLINDED (INFLIXIMAB, RECOMBINANT) LYOPHILIZED [Suspect]
     Indication: ANKYLOSING SPONDYLITIS
     Dosage: INTRAVENOUS
     Route: 042
     Dates: start: 20030401
  4. INFLIXIMAB, RECOMBINANT-BLINDED (INFLIXIMAB, RECOMBINANT) LYOPHILIZED [Suspect]
     Indication: ANKYLOSING SPONDYLITIS
     Dosage: INTRAVENOUS
     Route: 042
     Dates: start: 20030512
  5. INFLIXIMAB, RECOMBINANT-BLINDED (INFLIXIMAB, RECOMBINANT) LYOPHILIZED [Suspect]
     Indication: ANKYLOSING SPONDYLITIS
     Dosage: INTRAVENOUS
     Route: 042
     Dates: start: 20030623
  6. INFLIXIMAB, RECOMBINANT-BLINDED (INFLIXIMAB, RECOMBINANT) LYOPHILIZED [Suspect]
     Indication: ANKYLOSING SPONDYLITIS
     Dosage: INTRAVENOUS
     Route: 042
     Dates: start: 20030805
  7. INFLIXIMAB, RECOMBINANT-BLINDED (INFLIXIMAB, RECOMBINANT) LYOPHILIZED [Suspect]
     Indication: ANKYLOSING SPONDYLITIS
     Dosage: INTRAVENOUS
     Route: 042
     Dates: start: 20030916
  8. INFLIXIMAB, RECOMBINANT-BLINDED (INFLIXIMAB, RECOMBINANT) LYOPHILIZED [Suspect]
     Indication: ANKYLOSING SPONDYLITIS
     Dosage: INTRAVENOUS
     Route: 042
     Dates: start: 20031027
  9. INFLIXIMAB, RECOMBINANT-BLINDED (INFLIXIMAB, RECOMBINANT) LYOPHILIZED [Suspect]
     Indication: ANKYLOSING SPONDYLITIS
     Dosage: INTRAVENOUS
     Route: 042
     Dates: start: 20031209
  10. INFLIXIMAB, RECOMBINANT-BLINDED (INFLIXIMAB, RECOMBINANT) LYOPHILIZED [Suspect]
     Indication: ANKYLOSING SPONDYLITIS
     Dosage: INTRAVENOUS
     Route: 042
     Dates: start: 20040119
  11. PLACEBO (PLACEBO) LYOPHILIZED POWDER [Suspect]
     Indication: ANKYLOSING SPONDYLITIS
     Dosage: INTRAVENOUS
     Route: 042
     Dates: start: 20030217
  12. PLACEBO (PLACEBO) LYOPHILIZED POWDER [Suspect]
     Indication: ANKYLOSING SPONDYLITIS
     Dosage: INTRAVENOUS
     Route: 042
     Dates: start: 20030307
  13. PLACEBO (PLACEBO) LYOPHILIZED POWDER [Suspect]
     Indication: ANKYLOSING SPONDYLITIS
     Dosage: INTRAVENOUS
     Route: 042
     Dates: start: 20030401
  14. PLACEBO (PLACEBO) LYOPHILIZED POWDER [Suspect]
     Indication: ANKYLOSING SPONDYLITIS
     Dosage: INTRAVENOUS
     Route: 042
     Dates: start: 20030512
  15. PLACEBO (PLACEBO) LYOPHILIZED POWDER [Suspect]
     Indication: ANKYLOSING SPONDYLITIS
     Dosage: INTRAVENOUS
     Route: 042
     Dates: start: 20030623
  16. PLACEBO (PLACEBO) LYOPHILIZED POWDER [Suspect]
     Indication: ANKYLOSING SPONDYLITIS
     Dosage: INTRAVENOUS
     Route: 042
     Dates: start: 20030805
  17. PLACEBO (PLACEBO) LYOPHILIZED POWDER [Suspect]
     Indication: ANKYLOSING SPONDYLITIS
     Dosage: INTRAVENOUS
     Route: 042
     Dates: start: 20030820
  18. PLACEBO (PLACEBO) LYOPHILIZED POWDER [Suspect]
     Indication: ANKYLOSING SPONDYLITIS
     Dosage: INTRAVENOUS
     Route: 042
     Dates: start: 20030916
  19. PLACEBO (PLACEBO) LYOPHILIZED POWDER [Suspect]
     Indication: ANKYLOSING SPONDYLITIS
     Dosage: INTRAVENOUS
     Route: 042
     Dates: start: 20031027
  20. PLACEBO (PLACEBO) LYOPHILIZED POWDER [Suspect]
     Indication: ANKYLOSING SPONDYLITIS
     Dosage: INTRAVENOUS
     Route: 042
     Dates: start: 20031209
  21. PLACEBO (PLACEBO) LYOPHILIZED POWDER [Suspect]
     Indication: ANKYLOSING SPONDYLITIS
     Dosage: INTRAVENOUS
     Route: 042
     Dates: start: 20040119
  22. VIOXX [Concomitant]
  23. OMEPRAZOLE [Concomitant]
  24. VIGANTOLETTEN (COLECALCIFEROL) [Concomitant]
  25. CALCIUM [Concomitant]

REACTIONS (5)
  - ARTHRALGIA [None]
  - C-REACTIVE PROTEIN INCREASED [None]
  - LUPUS-LIKE SYNDROME [None]
  - PAIN [None]
  - POLYARTHRITIS [None]
